FAERS Safety Report 4354516-7 (Version None)
Quarter: 2004Q2

REPORT INFORMATION
  Report Type: 
  Country: None (occurrence: None)
  Receive Date: 20040503
  Receipt Date: 20040413
  Transmission Date: 20050107
  Serious: Yes (Other)
  Sender: FDA-Public Use
  Company Number: US_0404102464

PATIENT
  Age: 74 Year
  Sex: Female

DRUGS (2)
  1. EVISTA [Suspect]
  2. FOSAMAX [Concomitant]

REACTIONS (4)
  - BACK PAIN [None]
  - BODY HEIGHT DECREASED [None]
  - LUMBAR VERTEBRAL FRACTURE [None]
  - THORACIC VERTEBRAL FRACTURE [None]
